FAERS Safety Report 17358230 (Version 1)
Quarter: 2020Q1

REPORT INFORMATION
  Report Type: Spontaneous
  Country: CN (occurrence: CN)
  Receive Date: 20200131
  Receipt Date: 20200131
  Transmission Date: 20200409
  Serious: Yes (Other)
  Sender: FDA-Public Use
  Company Number: CN-BAXTER-2020BAX001906

PATIENT
  Age: 80 Year
  Sex: Male
  Weight: 70 kg

DRUGS (3)
  1. YINUOSHU [Suspect]
     Active Substance: AMBROXOL HYDROCHLORIDE
     Indication: PNEUMONITIS
     Route: 042
     Dates: start: 20200121, end: 20200121
  2. PIPERACILLIN SODIUM AND SULBACTAM SODIUM [Suspect]
     Active Substance: PIPERACILLIN SODIUM\SULBACTAM SODIUM
     Indication: PNEUMONITIS
     Route: 041
     Dates: start: 20200121, end: 20200121
  3. 0.9% SODIUM CHLORIDE INJECTION [Suspect]
     Active Substance: SODIUM CHLORIDE
     Indication: PNEUMONITIS
     Route: 041
     Dates: start: 20200121, end: 20200121

REACTIONS (3)
  - Asthma [Recovering/Resolving]
  - Heart rate increased [Recovering/Resolving]
  - Tremor [Recovering/Resolving]

NARRATIVE: CASE EVENT DATE: 20200121
